FAERS Safety Report 5220675-7 (Version None)
Quarter: 2007Q1

REPORT INFORMATION
  Report Type: 
  Country: None (occurrence: None)
  Receive Date: 20070126
  Receipt Date: 20070122
  Transmission Date: 20070707
  Serious: Yes (Life-Threatening, Hospitalization, Other)
  Sender: FDA-Public Use
  Company Number: PHMT2006CA02092

PATIENT
  Age: 25 Year
  Sex: Male
  Weight: 60 kg

DRUGS (3)
  1. CLOZARIL [Suspect]
     Indication: SCHIZOPHRENIA
     Route: 048
  2. CLOZARIL [Suspect]
     Dosage: UNK, UNK
     Route: 048
     Dates: start: 20060410, end: 20061107
  3. LAMOTRIGINE [Concomitant]

REACTIONS (7)
  - CONVULSION [None]
  - FALL [None]
  - GAIT DISTURBANCE [None]
  - HAEMATEMESIS [None]
  - HAEMATOMA [None]
  - HEAD INJURY [None]
  - LOSS OF CONSCIOUSNESS [None]
